FAERS Safety Report 14950369 (Version 1)
Quarter: 2018Q2

REPORT INFORMATION
  Report Type: Spontaneous
  Country: US (occurrence: US)
  Receive Date: 20180530
  Receipt Date: 20180530
  Transmission Date: 20180711
  Serious: No
  Sender: FDA-Public Use
  Company Number: US-BIOGEN-2018BI00584587

PATIENT
  Sex: Male

DRUGS (1)
  1. TYSABRI [Suspect]
     Active Substance: NATALIZUMAB
     Indication: MULTIPLE SCLEROSIS
     Route: 065
     Dates: start: 20110616, end: 20171219

REACTIONS (6)
  - Dysarthria [Unknown]
  - Vision blurred [Unknown]
  - Aphasia [Unknown]
  - Photophobia [Unknown]
  - Multiple sclerosis [Unknown]
  - Gait disturbance [Unknown]
